FAERS Safety Report 25251726 (Version 2)
Quarter: 2025Q2

REPORT INFORMATION
  Report Type: Spontaneous
  Country: US (occurrence: US)
  Receive Date: 20250429
  Receipt Date: 20250522
  Transmission Date: 20250716
  Serious: Yes (Other)
  Sender: PFIZER
  Company Number: US-PFIZER INC-202500088016

PATIENT
  Age: 48 Year
  Sex: Male

DRUGS (5)
  1. TUKYSA [Suspect]
     Active Substance: TUCATINIB
     Dosage: EVERY 12 HOURS
     Route: 048
  2. TUKYSA [Suspect]
     Active Substance: TUCATINIB
     Dosage: 150MG 1 TABLET TWICE DAILY
     Route: 048
  3. TUKYSA [Suspect]
     Active Substance: TUCATINIB
     Dosage: TUKYSA 150 AND TUKYSA 50MG DOSING 200MG TWICE DAILY
     Dates: start: 202504
  4. HYDROCODONE [Concomitant]
     Active Substance: HYDROCODONE
     Dosage: UNK, 1X/DAY
  5. OXYCODONE [Concomitant]
     Active Substance: OXYCODONE
     Indication: Pain

REACTIONS (3)
  - Gastrointestinal haemorrhage [Unknown]
  - Fatigue [Not Recovered/Not Resolved]
  - Memory impairment [Unknown]
